FAERS Safety Report 18227579 (Version 2)
Quarter: 2020Q3

REPORT INFORMATION
  Report Type: Spontaneous
  Country: CN (occurrence: CN)
  Receive Date: 20200903
  Receipt Date: 20200910
  Transmission Date: 20201103
  Serious: Yes (Hospitalization, Other)
  Sender: FDA-Public Use
  Company Number: CN-ASTRAZENECA-2020SF10976

PATIENT
  Age: 35 Year
  Sex: Male
  Weight: 58 kg

DRUGS (7)
  1. NEXIUM I.V. [Suspect]
     Active Substance: ESOMEPRAZOLE SODIUM
     Route: 042
  2. PANTOPRAZOLE [Concomitant]
     Active Substance: PANTOPRAZOLE
  3. NEXIUM [Suspect]
     Active Substance: ESOMEPRAZOLE MAGNESIUM
     Indication: GASTRIC DISORDER
     Route: 048
  4. LOSEC [Suspect]
     Active Substance: OMEPRAZOLE
     Route: 048
  5. NEXIUM [Suspect]
     Active Substance: ESOMEPRAZOLE MAGNESIUM
     Indication: GASTRIC DISORDER
     Dosage: INTERMITTENTLY WHEN THE PATIENT HAD STOMACH DISCOMFORT
     Route: 048
  6. NEXIUM [Suspect]
     Active Substance: ESOMEPRAZOLE MAGNESIUM
     Indication: GASTRIC DISORDER
     Dosage: ONE OR TWO TABLETS
     Route: 048
  7. NEXIUM [Suspect]
     Active Substance: ESOMEPRAZOLE MAGNESIUM
     Indication: GASTRIC DISORDER
     Dosage: SOMETIMES 20MG IS TAKEN EVERY MORNING, AND SOMETIMES 20MG EACH MORNING AND EVENING.
     Route: 048

REACTIONS (8)
  - Lacrimation decreased [Not Recovered/Not Resolved]
  - Vision blurred [Recovering/Resolving]
  - Heart rate increased [Unknown]
  - Macular fibrosis [Unknown]
  - Chest discomfort [Unknown]
  - Gastric haemorrhage [Unknown]
  - Product use issue [Unknown]
  - Dyspnoea [Unknown]

NARRATIVE: CASE EVENT DATE: 2017
